FAERS Safety Report 4551466-8 (Version None)
Quarter: 2005Q1

REPORT INFORMATION
  Report Type: 
  Country: None (occurrence: None)
  Receive Date: 20050111
  Receipt Date: 20050103
  Transmission Date: 20050727
  Serious: Yes (Hospitalization)
  Sender: FDA-Public Use
  Company Number: 2005002083

PATIENT
  Age: 72 Year
  Sex: Female

DRUGS (5)
  1. EPIRUBICIN [Suspect]
     Indication: BREAST CANCER
     Dosage: 117 MG, INTRAVENOUS
     Route: 042
     Dates: start: 20020101, end: 20041008
  2. FLUOROURACIL [Suspect]
     Indication: BREAST CANCER
     Dosage: 588 MG, INTRAVENOUS
     Route: 042
     Dates: start: 20020101, end: 20041008
  3. CYCLOPHOSPHAMIDE [Suspect]
     Indication: BREAST CANCER
     Dosage: 588 MG, INTRAVENOUS
     Route: 042
     Dates: start: 20020101, end: 20041008
  4. DEXAMETHASONE [Suspect]
     Indication: ILL-DEFINED DISORDER
     Dosage: (20 MG), INTRAVENOUS
     Route: 042
  5. ONDANSETRON HCL [Suspect]
     Indication: ILL-DEFINED DISORDER
     Dosage: (2 MG/ML), INTRAVENOUS
     Route: 042

REACTIONS (2)
  - COLITIS ISCHAEMIC [None]
  - RECTAL HAEMORRHAGE [None]
